FAERS Safety Report 6917756-6 (Version None)
Quarter: 2010Q3

REPORT INFORMATION
  Report Type: 
  Country: None (occurrence: None)
  Receive Date: 20100810
  Receipt Date: 20100729
  Transmission Date: 20110219
  Serious: Yes (Other)
  Sender: FDA-Public Use
  Company Number: US-PFIZER INC-2010095744

PATIENT
  Sex: Male
  Weight: 78.005 kg

DRUGS (8)
  1. DILANTIN [Suspect]
     Indication: CONVULSION
     Dosage: 200 MG, 2X/DAY
     Route: 048
  2. LYRICA [Suspect]
     Indication: PAIN IN EXTREMITY
     Dosage: 75 MG, 1X/DAY
     Route: 048
     Dates: start: 20100701
  3. CYMBALTA [Suspect]
     Dosage: UNK
  4. ACETYLSALICYLIC ACID [Concomitant]
     Indication: CARDIAC DISORDER
     Dosage: 325 MG, 1X/DAY
     Route: 048
  5. ACETYLSALICYLIC ACID [Concomitant]
     Indication: HEADACHE
  6. AVALIDE [Concomitant]
  7. WARFARIN SODIUM [Concomitant]
     Indication: CARDIAC DISORDER
     Dosage: UNK %, UNK
     Route: 048
  8. COREG [Concomitant]
     Indication: HYPERTENSION
     Route: 048

REACTIONS (4)
  - GAIT DISTURBANCE [None]
  - NEUROPATHY PERIPHERAL [None]
  - OEDEMA PERIPHERAL [None]
  - PARAESTHESIA [None]
